FAERS Safety Report 4765157-1 (Version None)
Quarter: 2005Q3

REPORT INFORMATION
  Report Type: 
  Country: None (occurrence: None)
  Receive Date: 20050906
  Receipt Date: 20050825
  Transmission Date: 20060218
  Serious: Yes (Other)
  Sender: FDA-Public Use
  Company Number: 2005098205

PATIENT
  Sex: Female

DRUGS (2)
  1. NORVASC [Suspect]
     Indication: ILL-DEFINED DISORDER
  2. ARTHROTEC [Concomitant]

REACTIONS (1)
  - RHEUMATOID ARTHRITIS [None]
